FAERS Safety Report 6188744-5 (Version None)
Quarter: 2009Q2

REPORT INFORMATION
  Report Type: 
  Country: None (occurrence: None)
  Receive Date: 20090511
  Receipt Date: 20090511
  Transmission Date: 20091009
  Serious: Yes (Life-Threatening)
  Sender: FDA-Public Use
  Company Number: None

PATIENT
  Age: 50 Year
  Sex: Male
  Weight: 83 kg

DRUGS (1)
  1. PENTOTHAL [Suspect]
     Indication: ANAESTHESIA
     Dosage: 250MG ONCE IV
     Route: 042
     Dates: start: 20090415, end: 20090415

REACTIONS (2)
  - ANAPHYLACTIC REACTION [None]
  - BRADYCARDIA [None]
